FAERS Safety Report 7511335-8 (Version None)
Quarter: 2011Q2

REPORT INFORMATION
  Report Type: 
  Country: None (occurrence: None)
  Receive Date: 20110531
  Receipt Date: 20110509
  Transmission Date: 20111010
  Serious: Yes (Other)
  Sender: FDA-Public Use
  Company Number: US-BAYER-201035584NA

PATIENT
  Age: 20 Year
  Sex: Female
  Weight: 53.061 kg

DRUGS (3)
  1. NAPROSYN [Concomitant]
     Route: 048
  2. EFFEXOR [Concomitant]
     Indication: DEPRESSION
     Dosage: UNK
     Route: 048
  3. YASMIN [Suspect]
     Indication: PRODUCT USED FOR UNKNOWN INDICATION
     Route: 048
     Dates: start: 20020101, end: 20070101

REACTIONS (4)
  - CHOLELITHIASIS [None]
  - COELIAC DISEASE [None]
  - CHOLECYSTECTOMY [None]
  - CHOLECYSTITIS CHRONIC [None]
